FAERS Safety Report 4501322-6 (Version None)
Quarter: 2004Q4

REPORT INFORMATION
  Report Type: 
  Country: None (occurrence: None)
  Receive Date: 20041109
  Receipt Date: 20041026
  Transmission Date: 20050328
  Serious: No
  Sender: FDA-Public Use
  Company Number: 2004AC00670

PATIENT
  Age: 60 Year
  Sex: Female
  Weight: 53 kg

DRUGS (10)
  1. BUPIVACAINE [Suspect]
     Indication: ANAESTHESIA
     Dosage: 10 ML ONCE ED
     Route: 008
  2. FENTANYL [Suspect]
     Indication: ANAESTHESIA
     Dosage: 25 UG ONCE ED
     Route: 008
  3. ISOSORBIDE MONONITRATE [Concomitant]
  4. LOSARTAN [Concomitant]
  5. POTASSIUM [Concomitant]
  6. NICORANDIL [Concomitant]
  7. INSULIN [Concomitant]
  8. ALPRAZOLAM [Concomitant]
  9. LIDOCAINE [Concomitant]
  10. EPINEPHRINE [Concomitant]

REACTIONS (6)
  - ASTHENIA [None]
  - NERVOUS SYSTEM DISORDER [None]
  - PARAESTHESIA [None]
  - PERIPHERAL NERVE DECOMPRESSION [None]
  - POST PROCEDURAL COMPLICATION [None]
  - SENSORY LOSS [None]
